FAERS Safety Report 8178138-5 (Version None)
Quarter: 2012Q1

REPORT INFORMATION
  Report Type: 
  Country: None (occurrence: None)
  Receive Date: 20120301
  Receipt Date: 20120227
  Transmission Date: 20120608
  Serious: Yes (Death, Other)
  Sender: FDA-Public Use
  Company Number: CHPA2012US003724

PATIENT
  Age: 48 Year
  Sex: Female

DRUGS (6)
  1. DIPHENHYDRAMINE HCL [Suspect]
     Dosage: UNK, UNK
     Route: 048
  2. OXYCODONE HCL [Suspect]
     Dosage: UNK, UNK
     Route: 048
  3. CITALOPRAM HYDROBROMIDE [Suspect]
     Dosage: UNK, UNK
     Route: 048
  4. HYDROCODONE BITARTRATE [Suspect]
     Dosage: UNK, UNK
     Route: 048
  5. ETHANOL [Suspect]
     Dosage: UNK, UNK
     Route: 048
  6. TAPENTADOL HYDROCHLORIDE [Suspect]
     Dosage: UNK, UNK
     Route: 048

REACTIONS (2)
  - CARDIO-RESPIRATORY ARREST [None]
  - DRUG ABUSE [None]
